FAERS Safety Report 6834530-X (Version None)
Quarter: 2010Q3

REPORT INFORMATION
  Report Type: 
  Country: None (occurrence: None)
  Receive Date: 20100712
  Receipt Date: 20070423
  Transmission Date: 20110219
  Serious: Yes (Other)
  Sender: FDA-Public Use
  Company Number: US-PFIZER INC-2007023415

PATIENT
  Sex: Male
  Weight: 107 kg

DRUGS (5)
  1. CHANTIX [Suspect]
     Dates: start: 20070301
  2. ALL OTHER THERAPEUTIC PRODUCTS [Concomitant]
  3. ANTIHYPERTENSIVES [Concomitant]
  4. CHOLESTEROL [Concomitant]
  5. DRUG USED IN DIABETES [Concomitant]

REACTIONS (5)
  - HEART RATE INCREASED [None]
  - HYPERTENSION [None]
  - NERVOUSNESS [None]
  - NIGHTMARE [None]
  - PANIC ATTACK [None]
